FAERS Safety Report 5956410-4 (Version None)
Quarter: 2008Q4

REPORT INFORMATION
  Report Type: 
  Country: None (occurrence: None)
  Receive Date: 20081118
  Receipt Date: 20081111
  Transmission Date: 20090506
  Serious: Yes (Hospitalization)
  Sender: FDA-Public Use
  Company Number: JP-AVENTIS-200813505JP

PATIENT
  Age: 76 Year
  Sex: Male

DRUGS (2)
  1. LASIX [Suspect]
     Route: 048
  2. NU-LOTAN [Concomitant]

REACTIONS (1)
  - OCULOMUCOCUTANEOUS SYNDROME [None]
